FAERS Safety Report 17690070 (Version 1)
Quarter: 2020Q2

REPORT INFORMATION
  Report Type: Spontaneous
  Country: CN (occurrence: CN)
  Receive Date: 20200421
  Receipt Date: 20200421
  Transmission Date: 20200714
  Serious: Yes (Death, Other)
  Sender: FDA-Public Use
  Company Number: CN-JNJFOC-20200418088

PATIENT
  Age: 88 Year
  Sex: Male
  Weight: 67 kg

DRUGS (3)
  1. METOPROLOL. [Concomitant]
     Active Substance: METOPROLOL
  2. RIVAROXABAN [Suspect]
     Active Substance: RIVAROXABAN
     Indication: DRUG THERAPY
     Dosage: 15 MG, QD
     Route: 048
     Dates: start: 20200410, end: 20200411
  3. BAYASPIRIN [Suspect]
     Active Substance: ASPIRIN
     Indication: DRUG THERAPY
     Dosage: 100 MG, QD
     Route: 048
     Dates: start: 20200306, end: 20200410

REACTIONS (9)
  - Melaena [Fatal]
  - Muscle twitching [Unknown]
  - Dizziness [Unknown]
  - Chest discomfort [Unknown]
  - Headache [Unknown]
  - Haematochezia [Fatal]
  - Loss of consciousness [Unknown]
  - Asthenia [Unknown]
  - Gastrointestinal haemorrhage [Fatal]

NARRATIVE: CASE EVENT DATE: 202003
